FAERS Safety Report 10268115 (Version 1)
Quarter: 2014Q2

REPORT INFORMATION
  Report Type: Report from Study
  Country: US (occurrence: US)
  Receive Date: 20140630
  Receipt Date: 20140630
  Transmission Date: 20141212
  Serious: Yes (Hospitalization, Other)
  Sender: FDA-Public Use
  Company Number: US-ACTELION-A-NJ2014-100838

PATIENT
  Age: 33 Year
  Sex: Female

DRUGS (2)
  1. VELETRI [Suspect]
     Indication: COR PULMONALE CHRONIC
     Dosage: 15 NG/KG, PER MIN
     Route: 042
     Dates: start: 20140122
  2. LETAIRIS [Concomitant]

REACTIONS (7)
  - Gastric disorder [Recovering/Resolving]
  - Weight decreased [Recovering/Resolving]
  - Abdominal pain upper [Recovering/Resolving]
  - Biopsy stomach [Unknown]
  - Device malfunction [Unknown]
  - Arthralgia [Unknown]
  - Joint stiffness [Unknown]
